FAERS Safety Report 7284645-X (Version None)
Quarter: 2011Q1

REPORT INFORMATION
  Report Type: 
  Country: None (occurrence: None)
  Receive Date: 20110210
  Receipt Date: 20110201
  Transmission Date: 20110831
  Serious: No
  Sender: FDA-Public Use
  Company Number: US-BIOGENIDEC-2011BI003893

PATIENT
  Age: 58 Year
  Sex: Female

DRUGS (3)
  1. TYSABRI [Suspect]
     Indication: MULTIPLE SCLEROSIS
     Route: 042
     Dates: start: 20100727
  2. PAIN MEDICATION (NOS) [Concomitant]
     Indication: PAIN IN EXTREMITY
  3. PAIN MEDICATION (NOS) [Concomitant]
     Indication: BACK PAIN

REACTIONS (2)
  - PAIN IN EXTREMITY [None]
  - SOMNOLENCE [None]
